FAERS Safety Report 18386436 (Version 2)
Quarter: 2021Q1

REPORT INFORMATION
  Report Type: Report from Study
  Country: JP (occurrence: JP)
  Receive Date: 20201015
  Receipt Date: 20210324
  Transmission Date: 20210419
  Serious: Yes (Hospitalization, Other)
  Sender: FDA-Public Use
  Company Number: JP-GLAXOSMITHKLINE-JP2020JPN024387

PATIENT
  Age: 6 Decade
  Sex: Male
  Weight: 85 kg

DRUGS (40)
  1. MEPOLIZUMAB [Suspect]
     Active Substance: MEPOLIZUMAB
     Dosage: 300 MG
     Route: 058
     Dates: start: 20190107, end: 20190107
  2. MEPOLIZUMAB [Suspect]
     Active Substance: MEPOLIZUMAB
     Dosage: 300 MG
     Route: 058
     Dates: start: 20200124, end: 20200124
  3. PREDONINE [Suspect]
     Active Substance: PREDNISOLONE
     Dosage: 1 MG, 1D
     Route: 048
     Dates: start: 20191004, end: 20191106
  4. TRAMCET [Concomitant]
     Active Substance: ACETAMINOPHEN\TRAMADOL
     Dosage: UNK
  5. CELECOX [Concomitant]
     Active Substance: CELECOXIB
     Dosage: UNK
  6. SANBETASON [Concomitant]
     Active Substance: DEXAMETHASONE
  7. PRIVINA [Concomitant]
     Active Substance: NAPHAZOLINE NITRATE
  8. MEPOLIZUMAB [Suspect]
     Active Substance: MEPOLIZUMAB
     Dosage: 300MG EVERY 4 WEEKS
     Route: 058
     Dates: start: 20190708, end: 20190708
  9. PREDONINE [Suspect]
     Active Substance: PREDNISOLONE
     Dosage: 8 MG, 1D
     Route: 048
     Dates: start: 20181210, end: 20190106
  10. PREDONINE [Suspect]
     Active Substance: PREDNISOLONE
     Dosage: 3 MG, 1D
     Route: 048
     Dates: start: 20190807, end: 20190905
  11. METHYCOBAL [Concomitant]
     Active Substance: METHYLCOBALAMIN
     Dosage: UNK
  12. EDIROL [Concomitant]
     Active Substance: ELDECALCITOL
     Indication: PROPHYLAXIS
     Dosage: UNK
  13. BAKTAR [Concomitant]
     Active Substance: SULFAMETHOXAZOLE\TRIMETHOPRIM
     Indication: PROPHYLAXIS
     Dosage: UNK
  14. ANTEBATE [Concomitant]
     Active Substance: BETAMETHASONE DIPROPIONATE
     Dosage: UNK
     Dates: start: 20190115, end: 20190121
  15. COR?TYZINE [Concomitant]
     Dosage: UNK UNK, 6D
     Route: 045
     Dates: start: 20190328
  16. ASTOMIN [Concomitant]
  17. PREDONINE [Suspect]
     Active Substance: PREDNISOLONE
     Indication: EOSINOPHILIC GRANULOMATOSIS WITH POLYANGIITIS
     Dosage: 9 MG, 1D
     Route: 048
     Dates: end: 20181209
  18. PREDONINE [Suspect]
     Active Substance: PREDNISOLONE
     Dosage: 6 MG, 1D
     Route: 048
     Dates: start: 20190107, end: 20190203
  19. NOVAMIN (JAPAN) [Concomitant]
     Indication: PROPHYLAXIS OF NAUSEA AND VOMITING
     Dosage: UNK
  20. MEPOLIZUMAB [Suspect]
     Active Substance: MEPOLIZUMAB
     Indication: EOSINOPHILIC GRANULOMATOSIS WITH POLYANGIITIS
     Dosage: 300MG EVERY 4 WEEKS
     Route: 058
     Dates: start: 20181112, end: 20181112
  21. MEPOLIZUMAB [Suspect]
     Active Substance: MEPOLIZUMAB
     Dosage: 300MG EVERY 4 WEEKS
     Route: 058
     Dates: start: 20190906, end: 20190906
  22. PREDONINE [Suspect]
     Active Substance: PREDNISOLONE
     Dosage: 4 MG, 1D
     Route: 048
     Dates: start: 20190304, end: 20190806
  23. MEPOLIZUMAB [Suspect]
     Active Substance: MEPOLIZUMAB
     Dosage: 300MG EVERY 4 WEEKS
     Route: 058
     Dates: start: 20190531, end: 20190531
  24. PREDONINE [Suspect]
     Active Substance: PREDNISOLONE
     Dosage: 5 MG, 1D
     Route: 048
     Dates: start: 20190204, end: 20190303
  25. ALLERMIST [Concomitant]
     Active Substance: FLUTICASONE FUROATE
     Dosage: 110 ?G, 1D
     Route: 045
     Dates: start: 20190131, end: 20190327
  26. CARBOCISTEINE [Concomitant]
     Active Substance: CARBOCYSTEINE
     Dosage: UNK
  27. HEPARINOID OIL?BASED CREAM 0.3% [Concomitant]
     Dosage: UNK
  28. NIZORAL [Concomitant]
     Active Substance: KETOCONAZOLE
  29. RUPAFIN [Concomitant]
     Active Substance: RUPATADINE FUMARATE
  30. MEPOLIZUMAB [Suspect]
     Active Substance: MEPOLIZUMAB
     Dosage: 300 MG
     Route: 058
     Dates: start: 20181210, end: 20181210
  31. MEPOLIZUMAB [Suspect]
     Active Substance: MEPOLIZUMAB
     Dosage: 300MG EVERY 4 WEEKS
     Route: 058
     Dates: start: 20190204, end: 20190204
  32. MEPOLIZUMAB [Suspect]
     Active Substance: MEPOLIZUMAB
     Dosage: 300MG EVERY 4 WEEKS
     Route: 058
     Dates: start: 20190304, end: 20190304
  33. MEPOLIZUMAB [Suspect]
     Active Substance: MEPOLIZUMAB
     Dosage: 300MG EVERY 4 WEEKS
     Route: 058
     Dates: start: 20191004, end: 20191004
  34. MEPOLIZUMAB [Suspect]
     Active Substance: MEPOLIZUMAB
     Dosage: 300 MG
     Route: 058
     Dates: start: 20191211, end: 20191211
  35. PREDONINE [Suspect]
     Active Substance: PREDNISOLONE
     Dosage: 2 MG, 1D
     Route: 048
     Dates: start: 20190906, end: 20191003
  36. XYZAL [Concomitant]
     Active Substance: LEVOCETIRIZINE DIHYDROCHLORIDE
     Dosage: UNK
     Route: 048
  37. TAKECAB [Concomitant]
     Active Substance: VONOPRAZAN FUMARATE
     Indication: PROPHYLAXIS
     Dosage: UNK
  38. MEPOLIZUMAB [Suspect]
     Active Substance: MEPOLIZUMAB
     Dosage: 300MG EVERY 4 WEEKS
     Route: 058
     Dates: start: 20190422, end: 20190422
  39. MEPOLIZUMAB [Suspect]
     Active Substance: MEPOLIZUMAB
     Dosage: 300MG EVERY 4 WEEKS
     Route: 058
     Dates: start: 20190807, end: 20190807
  40. MEPOLIZUMAB [Suspect]
     Active Substance: MEPOLIZUMAB
     Dosage: 300 MG
     Route: 058
     Dates: start: 20191106, end: 20191106

REACTIONS (3)
  - Antineutrophil cytoplasmic antibody increased [Recovered/Resolved]
  - Osteonecrosis [Recovering/Resolving]
  - Inappropriate schedule of product administration [Unknown]

NARRATIVE: CASE EVENT DATE: 20180702
